FAERS Safety Report 6821993-9 (Version None)
Quarter: 2010Q3

REPORT INFORMATION
  Report Type: 
  Country: None (occurrence: None)
  Receive Date: 20100708
  Receipt Date: 20100701
  Transmission Date: 20110219
  Serious: Yes (Other)
  Sender: FDA-Public Use
  Company Number: US-ELI_LILLY_AND_COMPANY-US201005007816

PATIENT
  Sex: Male
  Weight: 122.45 kg

DRUGS (6)
  1. BYETTA [Suspect]
     Indication: TYPE 2 DIABETES MELLITUS
     Dosage: 5 UG, 2/D
     Route: 058
     Dates: start: 20070601, end: 20070701
  2. BYETTA [Suspect]
     Dosage: 10 UG, 2/D
     Route: 058
     Dates: start: 20070701, end: 20100527
  3. BYETTA [Suspect]
     Dosage: 10 UG, 2/D
     Dates: start: 20100101
  4. HUMALOG [Concomitant]
     Dosage: 100 U, EACH EVENING
  5. GLUCOPHAGE [Concomitant]
     Dosage: 1700 MG, UNK
  6. GLIPIZIDE [Concomitant]
     Dosage: 10 MG, UNK

REACTIONS (8)
  - BLOOD GLUCOSE DECREASED [None]
  - DECREASED APPETITE [None]
  - FALL [None]
  - HYPOGLYCAEMIA UNAWARENESS [None]
  - HYPOGLYCAEMIC UNCONSCIOUSNESS [None]
  - HYPOPHAGIA [None]
  - OFF LABEL USE [None]
  - VOMITING [None]
